FAERS Safety Report 6781116-1 (Version None)
Quarter: 2010Q2

REPORT INFORMATION
  Report Type: 
  Country: None (occurrence: None)
  Receive Date: 20100621
  Receipt Date: 20100610
  Transmission Date: 20101027
  Serious: Yes (Hospitalization)
  Sender: FDA-Public Use
  Company Number: NL-BRISTOL-MYERS SQUIBB COMPANY-15064470

PATIENT
  Age: 63 Year
  Sex: Male
  Weight: 80 kg

DRUGS (6)
  1. CETUXIMAB [Suspect]
     Indication: NON-SMALL CELL LUNG CANCER
     Dosage: 250MG/M2 WEEKLY (ONG);RECENT DOSE: 31MAR2010.
     Route: 042
     Dates: start: 20100310
  2. CISPLATIN [Suspect]
     Indication: NON-SMALL CELL LUNG CANCER
     Dosage: DAY 1 EVERY 21DAYS;RECENT DOSE: 31MAR2010.
     Route: 042
     Dates: start: 20100310
  3. ALIMTA [Suspect]
     Indication: NON-SMALL CELL LUNG CANCER
     Dosage: DAY 1 EVERY 21 DAYS;RECENT DOSE: 31MAR2010.
     Route: 042
     Dates: start: 20100310
  4. FOLIC ACID [Concomitant]
     Dates: start: 20100303
  5. VITAMIN B-12 [Concomitant]
     Dates: start: 20100303
  6. DEXAMETHASONE [Concomitant]
     Dates: start: 20100309

REACTIONS (2)
  - DIVERTICULAR PERFORATION [None]
  - PERITONITIS [None]
